FAERS Safety Report 8472341-2 (Version None)
Quarter: 2012Q2

REPORT INFORMATION
  Report Type: 
  Country: None (occurrence: None)
  Receive Date: 20120627
  Receipt Date: 20120619
  Transmission Date: 20120825
  Serious: Yes (Hospitalization, Other)
  Sender: FDA-Public Use
  Company Number: US-ACTELION-A-US2010-35677

PATIENT

DRUGS (26)
  1. TRACLEER [Suspect]
     Indication: PULMONARY ARTERIAL HYPERTENSION
     Dosage: 62.5MG BID
     Route: 048
     Dates: start: 20100326
  2. PANTOPRAZOLE [Concomitant]
  3. ASCORBIC ACID [Concomitant]
  4. COLECALCIFEROL [Concomitant]
  5. NITROGLYCERIN [Concomitant]
  6. ARTIFICIAL TEARS [Concomitant]
  7. ALBUTEROL [Concomitant]
  8. PROPYLENE GLYCOL [Concomitant]
  9. DULOXETIME HYDROCHLORIDE [Concomitant]
  10. ASPIRIN [Concomitant]
  11. CALCIUM CHANNEL BLOCKERS [Concomitant]
  12. TRAZODONE HCL [Concomitant]
  13. METFORMIN HCL [Concomitant]
  14. CLOTRIMAZOLE [Concomitant]
  15. VIAGRA [Suspect]
  16. COUMADIN [Concomitant]
  17. HYDROCHLOROTHIAZIDE [Concomitant]
  18. NOVOLIN N [Concomitant]
  19. LISINOPRIL [Concomitant]
  20. LORAZEPAM [Concomitant]
  21. EPIPEN [Concomitant]
  22. COENZYME Q10 [Concomitant]
  23. METOPROLOL TARTRATE [Concomitant]
  24. DIGOXIN [Concomitant]
  25. GABAPENTIN [Concomitant]
  26. SIMVASTATIN [Concomitant]

REACTIONS (7)
  - OSTEOPOROSIS [None]
  - ARRHYTHMIA [None]
  - CHEST PAIN [None]
  - SYNCOPE [None]
  - DIZZINESS [None]
  - SICK SINUS SYNDROME [None]
  - ATRIAL FIBRILLATION [None]
